FAERS Safety Report 10034062 (Version 1)
Quarter: 2014Q1

REPORT INFORMATION
  Report Type: Spontaneous
  Country: US (occurrence: None)
  Receive Date: 20140324
  Receipt Date: 20140324
  Transmission Date: 20141002
  Serious: Yes (Disabling)
  Sender: FDA-Public Use
  Company Number: None

PATIENT
  Age: 18 Year
  Sex: Female
  Weight: 87.09 kg

DRUGS (3)
  1. CIPRO [Suspect]
     Indication: BRONCHITIS
     Dosage: 1 PILL 4X DAILY?FOUR TIMES DAILY?TAKEN BY MOUTH?1976 TO 2000 2 OR 3X YEAR
     Route: 048
     Dates: start: 1976, end: 2000
  2. CIPRO [Suspect]
     Indication: EAR INFECTION
     Dosage: 1 PILL 4X DAILY?FOUR TIMES DAILY?TAKEN BY MOUTH?1976 TO 2000 2 OR 3X YEAR
     Route: 048
     Dates: start: 1976, end: 2000
  3. CIPRO [Suspect]
     Dosage: 1 PILL 4X DAILY?FOUR TIMES DAILY?TAKEN BY MOUTH?1976 TO 2000 2 OR 3X YEAR
     Route: 048
     Dates: start: 1976, end: 2000

REACTIONS (8)
  - Pain [None]
  - Headache [None]
  - Pain in jaw [None]
  - Arthralgia [None]
  - Fibromyalgia [None]
  - Disability [None]
  - Restless legs syndrome [None]
  - Impaired work ability [None]
